FAERS Safety Report 13113267 (Version 1)
Quarter: 2017Q1

REPORT INFORMATION
  Report Type: Spontaneous
  Country: US (occurrence: US)
  Receive Date: 20170113
  Receipt Date: 20170113
  Transmission Date: 20170428
  Serious: Yes (Hospitalization, Other)
  Sender: FDA-Public Use
  Company Number: US-GLAXOSMITHKLINE-US2017003873

PATIENT
  Sex: Female

DRUGS (3)
  1. DULERA [Concomitant]
     Active Substance: FORMOTEROL FUMARATE DIHYDRATE\MOMETASONE FUROATE
  2. VENTOLIN HFA [Suspect]
     Active Substance: ALBUTEROL SULFATE
     Indication: PRODUCT USED FOR UNKNOWN INDICATION
     Dosage: 1 PUFF(S), PRN
     Route: 055
     Dates: start: 1999
  3. NYSTATIN. [Concomitant]
     Active Substance: NYSTATIN

REACTIONS (7)
  - Gait disturbance [Unknown]
  - Asthenia [Recovered/Resolved]
  - Weight decreased [Unknown]
  - Exercise tolerance decreased [Unknown]
  - Lung disorder [Unknown]
  - Dyspnoea [Unknown]
  - Hospitalisation [Unknown]
